FAERS Safety Report 8393908-6 (Version None)
Quarter: 2012Q2

REPORT INFORMATION
  Report Type: 
  Country: None (occurrence: None)
  Receive Date: 20120516
  Receipt Date: 20120511
  Transmission Date: 20120825
  Serious: Yes (Death, Hospitalization)
  Sender: FDA-Public Use
  Company Number: 2012SP022703

PATIENT
  Age: 45 Year
  Sex: Female

DRUGS (7)
  1. CAPECITABINE [Suspect]
     Indication: BREAST CANCER METASTATIC
     Dosage: 1500 MG;QD; 1300 MG;BID
     Dates: start: 20110304
  2. BISPHOSPHONATES [Concomitant]
  3. ZOLEDRONOC ACID [Concomitant]
  4. ACYCLOVIR [Suspect]
     Indication: PRODUCT USED FOR UNKNOWN INDICATION
  5. HERCEPTIN [Concomitant]
  6. DEXAMETHASONE [Suspect]
     Indication: METASTASES TO CENTRAL NERVOUS SYSTEM
     Dosage: 3 MG; 6.5 MG;QD; 1.5 MG; 1 MG; 0.5 MG; 2.5 MG;QD
  7. LAPATINIB [Suspect]
     Indication: BREAST CANCER METASTATIC
     Dosage: 1000 MG; 500 MG; 1000 MG;QD
     Dates: start: 20110304

REACTIONS (40)
  - DIARRHOEA [None]
  - GAIT DISTURBANCE [None]
  - PURULENT DISCHARGE [None]
  - DIZZINESS [None]
  - MUSCULAR WEAKNESS [None]
  - SCAB [None]
  - NON-CARDIAC CHEST PAIN [None]
  - ABDOMINAL PAIN [None]
  - SKIN TOXICITY [None]
  - MALAISE [None]
  - MYOPATHY [None]
  - BURSITIS [None]
  - BRONCHITIS VIRAL [None]
  - LOCALISED INFECTION [None]
  - RASH MACULO-PAPULAR [None]
  - CUSHINGOID [None]
  - COORDINATION ABNORMAL [None]
  - NEOPLASM PROGRESSION [None]
  - JOINT SWELLING [None]
  - ABDOMINAL DISTENSION [None]
  - SKIN CHAPPED [None]
  - PALMAR-PLANTAR ERYTHRODYSAESTHESIA SYNDROME [None]
  - MUSCLE ATROPHY [None]
  - SKIN FISSURES [None]
  - RASH [None]
  - SKIN ULCER [None]
  - RASH PUSTULAR [None]
  - METASTASES TO CENTRAL NERVOUS SYSTEM [None]
  - OEDEMA [None]
  - GASTROINTESTINAL TOXICITY [None]
  - PAIN IN EXTREMITY [None]
  - VOMITING [None]
  - ERYTHEMA [None]
  - DRY SKIN [None]
  - INGROWING NAIL [None]
  - BREAST CANCER METASTATIC [None]
  - FATIGUE [None]
  - HEADACHE [None]
  - LIP ULCERATION [None]
  - GASTROOESOPHAGEAL REFLUX DISEASE [None]
